FAERS Safety Report 8129950-X (Version None)
Quarter: 2012Q1

REPORT INFORMATION
  Report Type: 
  Country: None (occurrence: None)
  Receive Date: 20120210
  Receipt Date: 20120203
  Transmission Date: 20120608
  Serious: Yes (Hospitalization)
  Sender: FDA-Public Use
  Company Number: ES-ROCHE-1037117

PATIENT
  Age: 63 Year
  Sex: Female

DRUGS (1)
  1. VALIUM [Suspect]
     Indication: MUSCLE CONTRACTURE
     Route: 048
     Dates: start: 20111102, end: 20111207

REACTIONS (2)
  - SYNCOPE [None]
  - GAIT DISTURBANCE [None]
